FAERS Safety Report 24565454 (Version 1)
Quarter: 2024Q4

REPORT INFORMATION
  Report Type: Spontaneous
  Country: TR (occurrence: TR)
  Receive Date: 20241030
  Receipt Date: 20241030
  Transmission Date: 20250114
  Serious: Yes (Other)
  Sender: RANBAXY
  Company Number: TR-SUN PHARMACEUTICAL INDUSTRIES LTD-2024R1-475866

PATIENT
  Age: 16 Year
  Sex: Male

DRUGS (6)
  1. RISPERIDONE [Suspect]
     Active Substance: RISPERIDONE
     Indication: Bipolar disorder
     Dosage: 5 MILLIGRAM, DAILY
     Route: 065
  2. QUETIAPINE [Suspect]
     Active Substance: QUETIAPINE
     Indication: Bipolar disorder
     Dosage: 1200 MILLIGRAM, DAILY
     Route: 065
  3. LITHIUM [Suspect]
     Active Substance: LITHIUM
     Indication: Bipolar disorder
     Dosage: 1200 MILLIGRAM, DAILY
     Route: 065
  4. CLONAZEPAM [Suspect]
     Active Substance: CLONAZEPAM
     Indication: Bipolar disorder
     Dosage: 2 MILLIGRAM, DAILY
     Route: 065
  5. LORAZEPAM [Suspect]
     Active Substance: LORAZEPAM
     Indication: Bipolar disorder
     Dosage: 2 MILLIGRAM, DAILY
     Route: 065
  6. BIPERIDEN [Suspect]
     Active Substance: BIPERIDEN
     Indication: Bipolar disorder
     Dosage: 2 MILLIGRAM, DAILY
     Route: 065

REACTIONS (1)
  - COVID-19 [Unknown]
